FAERS Safety Report 4665733-0 (Version None)
Quarter: 2005Q2

REPORT INFORMATION
  Report Type: 
  Country: None (occurrence: None)
  Receive Date: 20050519
  Receipt Date: 20050412
  Transmission Date: 20051028
  Serious: Yes (Hospitalization)
  Sender: FDA-Public Use
  Company Number: JP-BOEHRINGER INGELHEIM PHARMACEUTICALS, INC.-2005-BP-06033NB

PATIENT
  Sex: Male
  Weight: 53 kg

DRUGS (5)
  1. MICARDIS [Suspect]
     Indication: HYPERTENSION
     Route: 048
     Dates: start: 20050225, end: 20050408
  2. ADALAT [Concomitant]
     Indication: HYPERTENSION
     Route: 048
  3. ARTIST [Concomitant]
     Indication: HYPERTENSION
     Route: 048
  4. DAI-KEN-CHUTO (HERB MEDICINE) [Concomitant]
     Route: 048
     Dates: start: 20050222, end: 20050412
  5. VEGETAMIN-B [Concomitant]
     Indication: INSOMNIA
     Route: 048
     Dates: start: 20050210

REACTIONS (2)
  - HEPATIC FUNCTION ABNORMAL [None]
  - JAUNDICE [None]
